FAERS Safety Report 13661352 (Version 1)
Quarter: 2017Q2

REPORT INFORMATION
  Report Type: Report from Study
  Country: US (occurrence: US)
  Receive Date: 20170616
  Receipt Date: 20170616
  Transmission Date: 20170830
  Serious: No
  Sender: FDA-Public Use
  Company Number: US-US WORLDMEDS, LLC-USW201612-000821

PATIENT
  Sex: Male
  Weight: 66.22 kg

DRUGS (7)
  1. APOKYN [Suspect]
     Active Substance: APOMORPHINE HYDROCHLORIDE
     Indication: PARKINSON^S DISEASE
     Route: 058
     Dates: start: 2013
  2. KLONOPIN [Concomitant]
     Active Substance: CLONAZEPAM
  3. FINASTERIDE. [Concomitant]
     Active Substance: FINASTERIDE
  4. LORAZEPAM. [Concomitant]
     Active Substance: LORAZEPAM
  5. FLOMAX [Concomitant]
     Active Substance: TAMSULOSIN HYDROCHLORIDE
  6. SINEMET [Concomitant]
     Active Substance: CARBIDOPA\LEVODOPA
  7. NITROFURANTOIN. [Concomitant]
     Active Substance: NITROFURANTOIN
     Dates: start: 20161128

REACTIONS (2)
  - Dyspnoea [Unknown]
  - Urinary tract infection [Recovered/Resolved]
